FAERS Safety Report 4538501-8 (Version None)
Quarter: 2004Q4

REPORT INFORMATION
  Report Type: 
  Country: None (occurrence: None)
  Receive Date: 20041227
  Receipt Date: 20041217
  Transmission Date: 20050328
  Serious: Yes (Death)
  Sender: FDA-Public Use
  Company Number: CO-BOEHRINGER INGELHEIM PHARMMACEUTICALS, INC.-2004-BP-14034CL

PATIENT
  Sex: Female
  Weight: 55 kg

DRUGS (3)
  1. MICARDIS [Suspect]
     Indication: HYPERTENSION
     Route: 048
     Dates: start: 20040915
  2. FUROSEMIDE [Concomitant]
  3. PIROXICAM [Concomitant]

REACTIONS (1)
  - CARDIAC FAILURE CONGESTIVE [None]
